FAERS Safety Report 12074174 (Version 3)
Quarter: 2016Q2

REPORT INFORMATION
  Report Type: Spontaneous
  Country: US (occurrence: US)
  Receive Date: 20160212
  Receipt Date: 20160413
  Transmission Date: 20160815
  Serious: Yes (Death)
  Sender: FDA-Public Use
  Company Number: US-JNJFOC-20160210638

PATIENT
  Age: 42 Year
  Sex: Female

DRUGS (2)
  1. XARELTO [Suspect]
     Active Substance: RIVAROXABAN
     Indication: DEEP VEIN THROMBOSIS
     Route: 048
     Dates: start: 20130701, end: 20130927
  2. PERCOCET [Suspect]
     Active Substance: ACETAMINOPHEN\OXYCODONE HYDROCHLORIDE
     Indication: PAIN
     Dosage: THE DOSE WAS INCREASED TO TWO TABLETS PER ORAL EVERY 4-6 HOURS
     Route: 048
     Dates: start: 20130928

REACTIONS (8)
  - Petechiae [Fatal]
  - Internal haemorrhage [Fatal]
  - Haemorrhage intracranial [Fatal]
  - Thrombocytopenia [Fatal]
  - Haemothorax [Fatal]
  - Adverse drug reaction [Fatal]
  - Acute kidney injury [Fatal]
  - Haematuria [Fatal]

NARRATIVE: CASE EVENT DATE: 201309
